FAERS Safety Report 4836570-9 (Version None)
Quarter: 2005Q4

REPORT INFORMATION
  Report Type: 
  Country: None (occurrence: None)
  Receive Date: 20051121
  Receipt Date: 20051107
  Transmission Date: 20060501
  Serious: Yes (Other)
  Sender: FDA-Public Use
  Company Number: 2005153095

PATIENT
  Age: 82 Year
  Sex: Male
  Weight: 74.8435 kg

DRUGS (3)
  1. CELEBREX [Suspect]
     Indication: ROTATOR CUFF SYNDROME
     Dosage: 200 MG (200 MG, 1 IN 1 D), ROAL
     Route: 048
     Dates: start: 20051001, end: 20050101
  2. ZOCOR [Concomitant]
  3. PLAVIX [Concomitant]

REACTIONS (3)
  - ABASIA [None]
  - DISORIENTATION [None]
  - FALL [None]
